FAERS Safety Report 24405448 (Version 1)
Quarter: 2024Q4

REPORT INFORMATION
  Report Type: Spontaneous
  Country: US (occurrence: US)
  Receive Date: 20241007
  Receipt Date: 20241007
  Transmission Date: 20250114
  Serious: Yes (Hospitalization)
  Sender: SANOFI AVENTIS
  Company Number: US-SA-2024SA284612

PATIENT
  Age: 94 Year
  Sex: Male

DRUGS (1)
  1. DUPIXENT [Suspect]
     Active Substance: DUPILUMAB
     Indication: Skin disorder
     Dosage: 300 MG, QOW
     Route: 058
     Dates: end: 202409

REACTIONS (2)
  - Asthenia [Unknown]
  - Product used for unknown indication [Unknown]

NARRATIVE: CASE EVENT DATE: 20240901
